FAERS Safety Report 5204842-4 (Version None)
Quarter: 2007Q1

REPORT INFORMATION
  Report Type: 
  Country: None (occurrence: None)
  Receive Date: 20070110
  Receipt Date: 20060804
  Transmission Date: 20070707
  Serious: No
  Sender: FDA-Public Use
  Company Number: US-BRISTOL-MYERS SQUIBB COMPANY-13466180

PATIENT
  Age: 26 Year
  Sex: Female

DRUGS (2)
  1. ABILIFY [Suspect]
     Indication: BIPOLAR I DISORDER
     Route: 048
     Dates: start: 20060428
  2. ZOLOFT [Concomitant]
     Dosage: 50 MG IN APR-2006; 100 MG ON 26-MAY-2006; 150 MG ON 23-JUN-2006
     Dates: start: 20060401

REACTIONS (3)
  - HAEMATURIA [None]
  - POLLAKIURIA [None]
  - URINARY INCONTINENCE [None]
